FAERS Safety Report 21470538 (Version 1)
Quarter: 2022Q4

REPORT INFORMATION
  Report Type: Spontaneous
  Country: US (occurrence: None)
  Receive Date: 20221017
  Receipt Date: 20221017
  Transmission Date: 20230113
  Serious: Yes (Hospitalization)
  Sender: FDA-Public Use
  Company Number: None

PATIENT
  Age: 75 Year
  Sex: Male

DRUGS (1)
  1. IMATINIB MESYLATE [Suspect]
     Active Substance: IMATINIB MESYLATE
     Indication: Small intestine carcinoma
     Dosage: 400MG ONCE DAILY ORAL
     Route: 048
     Dates: start: 20220425

REACTIONS (1)
  - Neck surgery [None]

NARRATIVE: CASE EVENT DATE: 20221011
